FAERS Safety Report 10255099 (Version 1)
Quarter: 2014Q2

REPORT INFORMATION
  Report Type: Spontaneous
  Country: US (occurrence: US)
  Receive Date: 20140624
  Receipt Date: 20140624
  Transmission Date: 20141212
  Serious: Yes (Other)
  Sender: FDA-Public Use
  Company Number: US-PFIZER INC-2014169011

PATIENT
  Sex: 0

DRUGS (1)
  1. LYRICA [Suspect]
     Indication: DIABETIC NEUROPATHY
     Dosage: UNK
     Dates: start: 201309

REACTIONS (5)
  - Neoplasm [Unknown]
  - Tumour pain [Unknown]
  - Fluid retention [Unknown]
  - Dyspnoea [Unknown]
  - Gait disturbance [Unknown]
